FAERS Safety Report 6649803-3 (Version None)
Quarter: 2010Q1

REPORT INFORMATION
  Report Type: 
  Country: None (occurrence: None)
  Receive Date: 20100322
  Receipt Date: 20100308
  Transmission Date: 20100710
  Serious: Yes (Hospitalization)
  Sender: FDA-Public Use
  Company Number: A-NJ2010-34655

PATIENT
  Age: 66 Year
  Sex: Female

DRUGS (17)
  1. TRACLEER [Suspect]
     Indication: PULMONARY ARTERIAL HYPERTENSION
     Dosage: 125 MG, BID, ORAL
     Route: 048
     Dates: end: 20100303
  2. REVATIO [Concomitant]
  3. COUMADIN [Concomitant]
  4. ALLEGRA [Concomitant]
  5. DIGOXIN [Concomitant]
  6. SYNTHROID [Concomitant]
  7. ALDACTONE [Concomitant]
  8. PROTONIX [Concomitant]
  9. NASONEX [Concomitant]
  10. COREG [Concomitant]
  11. LASIX [Concomitant]
  12. DIOVAN [Concomitant]
  13. EFFEXOR [Concomitant]
  14. CONCERTA [Concomitant]
  15. VALIUM [Concomitant]
  16. LUNESTA [Concomitant]
  17. WELLBUTRIN XL [Concomitant]

REACTIONS (5)
  - ALANINE AMINOTRANSFERASE INCREASED [None]
  - ASPARTATE AMINOTRANSFERASE INCREASED [None]
  - BLOOD ALKALINE PHOSPHATASE INCREASED [None]
  - GASTROINTESTINAL DISORDER [None]
  - JAUNDICE [None]
